FAERS Safety Report 4404687-9 (Version None)
Quarter: 2004Q3

REPORT INFORMATION
  Report Type: 
  Country: None (occurrence: None)
  Receive Date: 20040720
  Receipt Date: 20040709
  Transmission Date: 20050211
  Serious: Yes (Hospitalization)
  Sender: FDA-Public Use
  Company Number: PROG00204001818

PATIENT
  Age: 47 Year
  Sex: Female

DRUGS (1)
  1. PROGESTERONE [Suspect]
     Indication: PROGESTERONE DECREASED
     Dosage: 100 MG QD PO
     Route: 048
     Dates: start: 20031212, end: 20031212

REACTIONS (4)
  - ASTHENIA [None]
  - BLOOD PRESSURE DIASTOLIC INCREASED [None]
  - SYNCOPE [None]
  - VERTIGO [None]
